FAERS Safety Report 12489487 (Version 1)
Quarter: 2016Q2

REPORT INFORMATION
  Report Type: Report from Study
  Country: US (occurrence: US)
  Receive Date: 20160622
  Receipt Date: 20160622
  Transmission Date: 20160815
  Serious: No
  Sender: FDA-Public Use
  Company Number: US-009507513-1605USA013357

PATIENT

DRUGS (34)
  1. ZOCOR [Suspect]
     Active Substance: SIMVASTATIN
     Indication: MYALGIA
     Dosage: UNK
  2. DEMEROL [Concomitant]
     Active Substance: MEPERIDINE HYDROCHLORIDE
     Indication: URTICARIA
  3. CROFELEMER [Concomitant]
     Active Substance: CROFELEMER
     Indication: DYSPNOEA
  4. MORPHINE [Concomitant]
     Active Substance: MORPHINE
     Indication: HEADACHE
  5. LESCOL XL [Concomitant]
     Active Substance: FLUVASTATIN SODIUM
     Indication: MYALGIA
  6. LODINE [Concomitant]
     Active Substance: ETODOLAC
     Indication: PRURITUS
  7. PROAIR HFA [Concomitant]
     Active Substance: ALBUTEROL SULFATE
     Dosage: 1 OR 2 PUFFS EVENRY 4 TO 6 HOURS
     Route: 055
     Dates: start: 20141016
  8. TESSALON [Suspect]
     Active Substance: BENZONATATE
     Dosage: 1 CAPSULE, TID
     Route: 048
     Dates: start: 20160119
  9. ASTELIN (AZELASTINE HYDROCHLORIDE) [Concomitant]
     Active Substance: AZELASTINE HYDROCHLORIDE
     Dosage: 2 SPRAYS EACH NOSTRIL, BID
     Route: 045
     Dates: start: 20141016
  10. OMEGA-3 MARINE TRIGLYCERIDES [Concomitant]
     Active Substance: FISH OIL
     Dosage: 2 DF, BID
     Route: 048
     Dates: start: 20130308
  11. TRAMADOL HYDROCHLORIDE. [Concomitant]
     Active Substance: TRAMADOL HYDROCHLORIDE
     Dosage: 1 TABLET, Q6H
     Route: 048
     Dates: start: 20151109
  12. XANAX [Suspect]
     Active Substance: ALPRAZOLAM
     Dosage: 1 DF, Q8H
     Route: 048
     Dates: start: 20151022
  13. BENADRYL [Concomitant]
     Active Substance: DIPHENHYDRAMINE HYDROCHLORIDE
     Indication: DYSPNOEA
  14. OXAPROZIN. [Concomitant]
     Active Substance: OXAPROZIN
     Indication: PRURITUS
  15. WELLBUTRIN [Concomitant]
     Active Substance: BUPROPION HYDROCHLORIDE
     Indication: FEELING ABNORMAL
  16. PYRIDOXINE [Concomitant]
     Active Substance: PYRIDOXINE
     Dosage: 1 DF, QD
     Route: 048
     Dates: start: 20141222
  17. LYRICA [Suspect]
     Active Substance: PREGABALIN
     Dosage: UNK
  18. PRAVACHOL [Concomitant]
     Active Substance: PRAVASTATIN SODIUM
     Indication: MYALGIA
  19. ZYBAN [Concomitant]
     Active Substance: BUPROPION HYDROCHLORIDE
     Indication: WOUND
  20. CEFTIN [Concomitant]
     Active Substance: CEFUROXIME AXETIL
     Indication: LIP SWELLING
  21. CEFTIN [Concomitant]
     Active Substance: CEFUROXIME AXETIL
     Indication: PRURITUS
  22. ZETIA [Concomitant]
     Active Substance: EZETIMIBE
     Dosage: 10 MG, QD
     Route: 048
     Dates: start: 20160119
  23. LESCOL [Concomitant]
     Active Substance: FLUVASTATIN SODIUM
  24. PANTOPRAZOLE SODIUM. [Concomitant]
     Active Substance: PANTOPRAZOLE SODIUM
     Dosage: 40 MG, BID
     Route: 048
     Dates: start: 20151022
  25. SINGULAIR [Concomitant]
     Active Substance: MONTELUKAST SODIUM
     Dosage: 1 DF, QD
     Route: 048
     Dates: start: 20151022
  26. COLESTID [Suspect]
     Active Substance: COLESTIPOL HYDROCHLORIDE
     Dosage: 2 DF, QD
     Route: 048
     Dates: start: 20160211
  27. DAYPRO [Suspect]
     Active Substance: OXAPROZIN
     Indication: PRURITUS
     Dosage: UNK
  28. CROFELEMER [Concomitant]
     Active Substance: CROFELEMER
     Indication: SWELLING
  29. MORPHINE [Concomitant]
     Active Substance: MORPHINE
     Indication: VOMITING
  30. ZOFRAN [Concomitant]
     Active Substance: ONDANSETRON HYDROCHLORIDE
  31. AMLODIPINE BESYLATE. [Concomitant]
     Active Substance: AMLODIPINE BESYLATE
     Dosage: 1 DF, QD
     Route: 048
     Dates: start: 20151022
  32. LEVOTHYROXINE SODIUM. [Concomitant]
     Active Substance: LEVOTHYROXINE SODIUM
     Dosage: 1 TABLET, QD
     Route: 048
     Dates: start: 20160114
  33. METHOCARBAMOL. [Concomitant]
     Active Substance: METHOCARBAMOL
     Dosage: 2 DF, QID
     Route: 048
     Dates: start: 20160119
  34. CHOLECALCIFEROL [Concomitant]
     Active Substance: CHOLECALCIFEROL
     Dosage: 1 CAPSULE, QD
     Route: 048
     Dates: start: 20130308

REACTIONS (2)
  - Drug hypersensitivity [Unknown]
  - Adverse event [Unknown]
